FAERS Safety Report 4581232-9 (Version None)
Quarter: 2005Q1

REPORT INFORMATION
  Report Type: 
  Country: None (occurrence: None)
  Receive Date: 20050214
  Receipt Date: 20040907
  Transmission Date: 20050727
  Serious: Yes (Other)
  Sender: FDA-Public Use
  Company Number: US-GLAXOSMITHKLINE-A0524749A

PATIENT
  Age: 67 Year
  Sex: Male

DRUGS (15)
  1. LAMICTAL [Suspect]
     Indication: BIPOLAR DISORDER
     Route: 048
     Dates: start: 20040521, end: 20040907
  2. LASIX [Concomitant]
  3. TOPROL-XL [Concomitant]
  4. LIPITOR [Concomitant]
  5. LEVOTHYROXINE [Concomitant]
  6. PENTOXIFYLLINE [Concomitant]
  7. TIAZAC [Concomitant]
  8. COZAAR [Concomitant]
  9. ASPIRIN [Concomitant]
  10. ASPIRIN [Concomitant]
  11. FOLIC ACID [Concomitant]
  12. SEREVENT [Concomitant]
  13. INSULIN [Concomitant]
  14. ALLOPURINOL [Concomitant]
  15. POTASSIUM CHLORIDE [Concomitant]

REACTIONS (10)
  - DRUG ERUPTION [None]
  - GENITAL PRURITUS MALE [None]
  - LIP DRY [None]
  - MANIA [None]
  - OEDEMA PERIPHERAL [None]
  - PRURITUS [None]
  - RASH [None]
  - RASH ERYTHEMATOUS [None]
  - SCROTAL SWELLING [None]
  - SWELLING FACE [None]
